FAERS Safety Report 8825118 (Version 2)
Quarter: 2012Q4

REPORT INFORMATION
  Report Type: 
  Country: BR (occurrence: BR)
  Receive Date: 20121004
  Receipt Date: 20121016
  Transmission Date: 20130627
  Serious: Yes (Hospitalization, Other)
  Sender: FDA-Public Use
  Company Number: BR-JNJFOC-20120912006

PATIENT
  Age: 70 Year
  Sex: Male

DRUGS (9)
  1. HALDOL [Suspect]
     Indication: DEMENTIA
     Route: 048
  2. HALDOL [Suspect]
     Indication: DEMENTIA
     Route: 048
     Dates: start: 201208
  3. HALDOL [Suspect]
     Indication: DEMENTIA
     Dosage: half of 5 mg tablet
     Route: 048
  4. DIAZEPAM [Concomitant]
     Route: 065
     Dates: start: 201208
  5. AKINETON [Concomitant]
     Route: 065
     Dates: start: 201208
  6. REMERON [Concomitant]
     Indication: SLEEP DISORDER THERAPY
     Route: 065
     Dates: start: 20120920
  7. ENDOFOLIN [Concomitant]
     Route: 065
     Dates: start: 20120920
  8. VITAMIN B1 [Concomitant]
     Route: 065
     Dates: start: 20120920
  9. MIDAZOLAM [Concomitant]
     Route: 065
     Dates: start: 201208

REACTIONS (15)
  - Blood pressure increased [Recovered/Resolved]
  - Pneumonia aspiration [Recovering/Resolving]
  - Eating disorder symptom [Not Recovered/Not Resolved]
  - Heart rate increased [Recovered/Resolved]
  - Hallucination [Recovered/Resolved]
  - Delirium [Recovered/Resolved]
  - Constipation [Not Recovered/Not Resolved]
  - Dysuria [Recovered/Resolved]
  - Wheezing [Not Recovered/Not Resolved]
  - Obstructive airways disorder [Not Recovered/Not Resolved]
  - Asthenia [Not Recovered/Not Resolved]
  - Dysphagia [Not Recovered/Not Resolved]
  - Anaemia [Not Recovered/Not Resolved]
  - Drug prescribing error [Unknown]
  - Medication error [Unknown]
